FAERS Safety Report 13394537 (Version 1)
Quarter: 2017Q2

REPORT INFORMATION
  Report Type: Report from Study
  Country: US (occurrence: US)
  Receive Date: 20170403
  Receipt Date: 20170403
  Transmission Date: 20170830
  Serious: Yes (Other)
  Sender: FDA-Public Use
  Company Number: US-ROCHE-1910119

PATIENT

DRUGS (3)
  1. DOCETAXEL. [Suspect]
     Active Substance: DOCETAXEL
     Indication: NON-SMALL CELL LUNG CANCER
     Dosage: ON DAY 1
     Route: 042
  2. BEVACIZUMAB [Suspect]
     Active Substance: BEVACIZUMAB
     Indication: NON-SMALL CELL LUNG CANCER
     Dosage: ON DAY 1
     Route: 042
  3. CARBOPLATIN. [Suspect]
     Active Substance: CARBOPLATIN
     Indication: NON-SMALL CELL LUNG CANCER
     Dosage: AREA UNDER THE CURVE [AUC] OF 6
     Route: 042

REACTIONS (22)
  - Infection [Unknown]
  - Deep vein thrombosis [Unknown]
  - Proteinuria [Unknown]
  - Fatigue [Unknown]
  - Granulocytopenia [Unknown]
  - Neuropathy peripheral [Unknown]
  - Thrombocytopenia [Unknown]
  - Pyrexia [Unknown]
  - Epistaxis [Unknown]
  - Haemothorax [Unknown]
  - Aspartate aminotransferase increased [Unknown]
  - Intestinal perforation [Unknown]
  - Hypertension [Unknown]
  - Pulmonary embolism [Unknown]
  - Anaemia [Unknown]
  - Hyponatraemia [Unknown]
  - Dehydration [Unknown]
  - Hypokalaemia [Unknown]
  - Cerebral ischaemia [Unknown]
  - Hypersensitivity [Unknown]
  - Nausea [Unknown]
  - Vomiting [Unknown]
